FAERS Safety Report 10056751 (Version 2)
Quarter: 2014Q2

REPORT INFORMATION
  Report Type: Spontaneous
  Country: JP (occurrence: JP)
  Receive Date: 20140403
  Receipt Date: 20140423
  Transmission Date: 20141212
  Serious: Yes (Other)
  Sender: FDA-Public Use
  Company Number: PHHY2014JP038410

PATIENT
  Age: 76 Year
  Sex: Female

DRUGS (1)
  1. AMANTADINE [Suspect]
     Indication: PARKINSON^S DISEASE

REACTIONS (10)
  - Toxic encephalopathy [Unknown]
  - Speech disorder [Unknown]
  - Dyskinesia [Recovering/Resolving]
  - Mental disorder [Unknown]
  - Depressed level of consciousness [Recovering/Resolving]
  - Thrombotic thrombocytopenic purpura [Unknown]
  - Haemolysis [Unknown]
  - Renal disorder [Unknown]
  - Renal impairment [Unknown]
  - Pyrexia [Unknown]
